FAERS Safety Report 24216149 (Version 3)
Quarter: 2024Q3

REPORT INFORMATION
  Report Type: Spontaneous
  Country: US (occurrence: US)
  Receive Date: 20240816
  Receipt Date: 20240913
  Transmission Date: 20241017
  Serious: No
  Sender: ROCHE
  Company Number: US-ROCHE-10000051636

PATIENT
  Age: 81 Year
  Sex: Female
  Weight: 63.04 kg

DRUGS (4)
  1. ACTEMRA ACTPEN [Suspect]
     Active Substance: TOCILIZUMAB
     Indication: Giant cell arteritis
     Dosage: 162 MG /0.9 ML
     Route: 058
     Dates: start: 20240722
  2. ACTEMRA ACTPEN [Suspect]
     Active Substance: TOCILIZUMAB
     Indication: Polymyalgia rheumatica
     Dosage: 162 MG /0.9 ML
     Route: 058
     Dates: start: 20240722
  3. PREDNISONE [Concomitant]
     Active Substance: PREDNISONE
     Indication: Polymyalgia rheumatica
     Dosage: TWO 2.5 MG TABLETS PER DOSE
     Route: 048
  4. PREDNISONE [Concomitant]
     Active Substance: PREDNISONE
     Dosage: TWO 2.5 MG TABLETS PER DOSE
     Route: 048

REACTIONS (5)
  - Device defective [Unknown]
  - Product complaint [Unknown]
  - Product dose omission issue [Unknown]
  - No adverse event [Unknown]
  - Needle issue [Unknown]
